FAERS Safety Report 12252063 (Version 1)
Quarter: 2016Q2

REPORT INFORMATION
  Report Type: Spontaneous
  Country: US (occurrence: None)
  Receive Date: 20160408
  Receipt Date: 20160408
  Transmission Date: 20160815
  Serious: Yes (Disabling)
  Sender: FDA-Public Use
  Company Number: None

PATIENT
  Age: 64 Year
  Sex: Female
  Weight: 61.24 kg

DRUGS (3)
  1. RIZATRIPTAN. [Concomitant]
     Active Substance: RIZATRIPTAN
  2. SIMVASTATIN 20MG TABLET [Suspect]
     Active Substance: SIMVASTATIN
     Indication: HYPERCHOLESTEROLAEMIA
     Route: 048
     Dates: start: 2011, end: 20160215
  3. MULTIVITAMINS FOR WOMEN [Concomitant]

REACTIONS (5)
  - Joint swelling [None]
  - Myalgia [None]
  - Pain in extremity [None]
  - Discomfort [None]
  - Arthralgia [None]

NARRATIVE: CASE EVENT DATE: 201406
